FAERS Safety Report 5211633-7 (Version None)
Quarter: 2007Q1

REPORT INFORMATION
  Report Type: 
  Country: None (occurrence: None)
  Receive Date: 20070118
  Receipt Date: 20061108
  Transmission Date: 20070707
  Serious: Yes (Other)
  Sender: FDA-Public Use
  Company Number: FI-JNJFOC-20061101605

PATIENT
  Age: 17 Year
  Sex: Female

DRUGS (3)
  1. CONCERTA [Suspect]
     Route: 065
  2. CONCERTA [Suspect]
     Indication: ATTENTION DEFICIT/HYPERACTIVITY DISORDER
     Route: 065
  3. INSULIN [Concomitant]
     Indication: DIABETES MELLITUS INSULIN-DEPENDENT

REACTIONS (1)
  - BLOOD GLUCOSE DECREASED [None]
